FAERS Safety Report 5803298-8 (Version None)
Quarter: 2008Q3

REPORT INFORMATION
  Report Type: 
  Country: None (occurrence: None)
  Receive Date: 20080708
  Receipt Date: 20080708
  Transmission Date: 20090109
  Serious: Yes (Other)
  Sender: FDA-Public Use
  Company Number: B0518201A

PATIENT
  Age: 71 Year
  Sex: Male

DRUGS (1)
  1. AUGMENTIN '125' [Suspect]
     Indication: DRUG USE FOR UNKNOWN INDICATION
     Route: 042
     Dates: start: 20080101, end: 20080101

REACTIONS (4)
  - BRONCHOSPASM [None]
  - DYSPNOEA [None]
  - SENSE OF OPPRESSION [None]
  - URTICARIA [None]
